FAERS Safety Report 12413658 (Version 4)
Quarter: 2016Q4

REPORT INFORMATION
  Report Type: Spontaneous
  Country: IT (occurrence: IT)
  Receive Date: 20160527
  Receipt Date: 20161005
  Transmission Date: 20170207
  Serious: Yes (Other)
  Sender: FDA-Public Use
  Company Number: PHHY2016IT073076

PATIENT
  Age: 75 Year
  Sex: Male

DRUGS (3)
  1. TAXOTERE [Suspect]
     Active Substance: DOCETAXEL
     Indication: PRODUCT USED FOR UNKNOWN INDICATION
     Dosage: UNK, CYCLIC FOR SEVEN MONTHS
     Route: 065
     Dates: start: 20140306, end: 20140923
  2. ZOMETA [Suspect]
     Active Substance: ZOLEDRONIC ACID
     Indication: BONE SARCOMA
     Dosage: 4 MG, CYCLIC,ONE EVERY THREE WEEKS FOR SIX MONTHS
     Route: 042
     Dates: start: 20140306, end: 20140923
  3. ZOMETA [Suspect]
     Active Substance: ZOLEDRONIC ACID
     Dosage: 4 MG, ONE EVERY FOUR WEEK
     Route: 042
     Dates: start: 20141020, end: 20141217

REACTIONS (10)
  - Erythema [Unknown]
  - Swelling [Unknown]
  - Gingivitis [Unknown]
  - Fistula [Unknown]
  - Osteomyelitis [Unknown]
  - Bone lesion [Unknown]
  - Soft tissue infection [Unknown]
  - Pain [Unknown]
  - Osteonecrosis of jaw [Recovered/Resolved]
  - Feeding disorder [Unknown]

NARRATIVE: CASE EVENT DATE: 20150101
